FAERS Safety Report 6689119-2 (Version None)
Quarter: 2010Q2

REPORT INFORMATION
  Report Type: 
  Country: None (occurrence: None)
  Receive Date: 20100412
  Receipt Date: 20100105
  Transmission Date: 20101027
  Serious: No
  Sender: FDA-Public Use
  Company Number: 1000011157

PATIENT
  Age: 69 Year
  Sex: Female
  Weight: 73.9363 kg

DRUGS (2)
  1. BYSTOLIC [Suspect]
     Dosage: 5 MG (5 MG, 1 IN 1 D), ORAL
     Route: 048
     Dates: start: 20090408, end: 20090429
  2. AZOR [Concomitant]

REACTIONS (6)
  - BALANCE DISORDER [None]
  - DEPRESSION [None]
  - HEART RATE IRREGULAR [None]
  - INSOMNIA [None]
  - PARAESTHESIA [None]
  - VISION BLURRED [None]
